FAERS Safety Report 20544527 (Version 3)
Quarter: 2022Q1

REPORT INFORMATION
  Report Type: Spontaneous
  Country: US (occurrence: US)
  Receive Date: 20220303
  Receipt Date: 20220323
  Transmission Date: 20220423
  Serious: No
  Sender: FDA-Public Use
  Company Number: US-BIOGEN-2022BI01100944

PATIENT
  Sex: Female

DRUGS (2)
  1. VUMERITY [Suspect]
     Active Substance: DIROXIMEL FUMARATE
     Indication: Multiple sclerosis
     Dosage: ONE 231 MG CAPSULE, BY MOUTH, TWICE A DAY FOR 7 DAYS
     Route: 065
     Dates: start: 202202
  2. VUMERITY [Suspect]
     Active Substance: DIROXIMEL FUMARATE
     Dosage: TWO 231 MG CAPSULES (462 MG), BY MOUTH, TWICE DAILY THEREAFTER
     Route: 048
     Dates: start: 20220218

REACTIONS (3)
  - Product dose omission in error [Unknown]
  - Gastric disorder [Unknown]
  - Flushing [Unknown]
